FAERS Safety Report 4951502-0 (Version None)
Quarter: 2006Q1

REPORT INFORMATION
  Report Type: 
  Country: None (occurrence: None)
  Receive Date: 20060317
  Receipt Date: 20060228
  Transmission Date: 20060701
  Serious: No
  Sender: FDA-Public Use
  Company Number: 6021019

PATIENT
  Age: 1 Year
  Sex: Male

DRUGS (5)
  1. AMNESTEEM [Suspect]
     Indication: ACNE CYSTIC
     Dosage: 40 MG, 1 IN 1 D, ORAL
     Route: 048
     Dates: start: 20060130, end: 20060201
  2. CYCLOBENZAPRINE HYDROCHLORIDE [Concomitant]
  3. CELECOXIB (CELECOXIB) [Concomitant]
  4. RABEPRAZOLE (RABEPRAZOLE) [Concomitant]
  5. HYDROCODONE BITARTRATE [Concomitant]

REACTIONS (2)
  - IRRITABILITY [None]
  - MOOD ALTERED [None]
